FAERS Safety Report 9296247 (Version 1)
Quarter: 2013Q2

REPORT INFORMATION
  Report Type: Spontaneous
  Country: US (occurrence: US)
  Receive Date: 20130517
  Receipt Date: 20130517
  Transmission Date: 20140414
  Serious: Yes (Hospitalization)
  Sender: FDA-Public Use
  Company Number: US-JNJFOC-20130504664

PATIENT
  Age: 83 Year
  Sex: Male

DRUGS (5)
  1. XARELTO [Suspect]
     Indication: PULMONARY EMBOLISM
     Route: 048
     Dates: start: 201304
  2. MAXZIDE [Concomitant]
     Route: 065
  3. BYSTOLIC [Concomitant]
     Route: 065
  4. FINASTERIDE [Concomitant]
     Route: 065
  5. NEXIUM [Concomitant]
     Route: 065

REACTIONS (2)
  - Ischaemic stroke [Unknown]
  - Dysphagia [Recovered/Resolved]
